FAERS Safety Report 8435553-X (Version None)
Quarter: 2012Q2

REPORT INFORMATION
  Report Type: 
  Country: None (occurrence: None)
  Receive Date: 20120614
  Receipt Date: 20120611
  Transmission Date: 20120825
  Serious: Yes (Hospitalization)
  Sender: FDA-Public Use
  Company Number: CA-AMGEN-CANSP2012018434

PATIENT
  Age: 75 Year
  Sex: Male

DRUGS (6)
  1. ENBREL [Suspect]
     Indication: RHEUMATOID ARTHRITIS
     Dosage: 50 MG, QWK
     Route: 058
     Dates: start: 20100512
  2. HEPTOVIR [Concomitant]
     Indication: HEPATITIS B
     Dosage: 100 MG, QD
     Route: 048
     Dates: start: 20100501
  3. VARENICLINE [Concomitant]
     Indication: TOBACCO ABUSE
     Dosage: 1 MG, BID
     Route: 048
  4. MISOPROSTOL [Concomitant]
     Indication: ARTHRITIS
     Dosage: 200 MG, QID
     Route: 048
     Dates: start: 20111209
  5. ARTHROTEC [Concomitant]
     Dosage: UNK
  6. DICLOFENAC SODIUM [Concomitant]
     Indication: ARTHRITIS
     Dosage: 75 MG, BID
     Route: 048
     Dates: start: 20030101

REACTIONS (4)
  - ATELECTASIS [None]
  - DYSPNOEA [None]
  - PNEUMONIA [None]
  - PLEURAL EFFUSION [None]
